FAERS Safety Report 9945155 (Version 1)
Quarter: 2014Q1

REPORT INFORMATION
  Report Type: Report from Study
  Country: US (occurrence: US)
  Receive Date: 20140303
  Receipt Date: 20140303
  Transmission Date: 20141002
  Serious: No
  Sender: FDA-Public Use
  Company Number: US-ABBVIE-13P-163-1053663-00

PATIENT
  Age: 74 Year
  Sex: Female

DRUGS (10)
  1. HUMIRA [Suspect]
     Indication: RHEUMATOID ARTHRITIS
     Dates: start: 201209
  2. VALSARTAN [Concomitant]
     Indication: PRODUCT USED FOR UNKNOWN INDICATION
  3. METOPROLOL [Concomitant]
     Indication: HYPERTENSION
  4. JANUVIA [Concomitant]
     Indication: PRODUCT USED FOR UNKNOWN INDICATION
  5. METFORMIN [Concomitant]
     Indication: DIABETES MELLITUS
  6. PROZAC [Concomitant]
     Indication: EATING DISORDER
  7. PREMARIN [Concomitant]
     Indication: PRODUCT USED FOR UNKNOWN INDICATION
  8. PREMARIN [Concomitant]
  9. PREDNISONE [Concomitant]
     Indication: INFLAMMATION
     Dosage: 5 MG THEN TAPERING DOWN 3 MILLIG
  10. PREDNISONE [Concomitant]

REACTIONS (1)
  - Pain [Recovering/Resolving]
